FAERS Safety Report 18089105 (Version 1)
Quarter: 2020Q3

REPORT INFORMATION
  Report Type: Spontaneous
  Country: GE (occurrence: GE)
  Receive Date: 20200729
  Receipt Date: 20200729
  Transmission Date: 20201103
  Serious: Yes (Other)
  Sender: FDA-Public Use
  Company Number: GE-FRESENIUS KABI-FK202007823

PATIENT
  Age: 3 Month
  Sex: Male

DRUGS (6)
  1. TOPIRAMATE. [Concomitant]
     Active Substance: TOPIRAMATE
     Indication: SEIZURE
     Dosage: UNKNOWN
     Route: 065
  2. PHENOBARBITAL. [Concomitant]
     Active Substance: PHENOBARBITAL
     Indication: SEIZURE
     Dosage: UNKNOWN
     Route: 065
  3. HYDROCORTISONE. [Concomitant]
     Active Substance: HYDROCORTISONE
     Indication: SEIZURE
     Dosage: UNKNOWN
     Route: 065
  4. TETRACOSACTIDE [Concomitant]
     Active Substance: COSYNTROPIN
     Indication: SEIZURE
     Dosage: UNKNOWN
     Route: 065
  5. LEVETIRACETAM (MANUFACTURER UNKNOWN) [Suspect]
     Active Substance: LEVETIRACETAM
     Indication: SEIZURE
     Dosage: UNKNOWN
     Route: 065
  6. PYRIDOXINE [Concomitant]
     Active Substance: PYRIDOXINE
     Indication: SEIZURE
     Dosage: UNKNOWN
     Route: 065

REACTIONS (1)
  - Seizure [Recovered/Resolved]
